FAERS Safety Report 6987835-6 (Version None)
Quarter: 2010Q3

REPORT INFORMATION
  Report Type: 
  Country: None (occurrence: None)
  Receive Date: 20100916
  Receipt Date: 20100902
  Transmission Date: 20110219
  Serious: Yes (Hospitalization, Other)
  Sender: FDA-Public Use
  Company Number: US-SANOFI-AVENTIS-2010SA053638

PATIENT
  Age: 45 Year
  Sex: Male

DRUGS (6)
  1. PLAVIX [Suspect]
     Route: 048
     Dates: start: 20100121, end: 20100401
  2. OXYMETAZOLINE HCL [Interacting]
     Route: 045
  3. METOPROLOL TARTRATE [Concomitant]
  4. SIMVASTATIN [Concomitant]
  5. LASIX [Concomitant]
  6. ALL OTHER THERAPEUTIC PRODUCTS [Concomitant]

REACTIONS (9)
  - CEREBROVASCULAR ACCIDENT [None]
  - DRUG INTERACTION [None]
  - HEMIPARESIS [None]
  - INFLUENZA LIKE ILLNESS [None]
  - MEMORY IMPAIRMENT [None]
  - RESPIRATORY FAILURE [None]
  - RESPIRATORY TRACT INFECTION [None]
  - SPEECH DISORDER [None]
  - WEIGHT INCREASED [None]
